FAERS Safety Report 6048011-7 (Version None)
Quarter: 2009Q1

REPORT INFORMATION
  Report Type: 
  Country: None (occurrence: None)
  Receive Date: 20090123
  Receipt Date: 20090121
  Transmission Date: 20090719
  Serious: Yes (Death)
  Sender: FDA-Public Use
  Company Number: PHHY2009GB02217

PATIENT
  Age: 34 Year
  Sex: Male

DRUGS (2)
  1. CLOZAPINE [Suspect]
     Dosage: UNK
     Route: 048
     Dates: start: 20010701, end: 20081127
  2. ZAPONEX [Suspect]
     Dosage: UNK
     Route: 048
     Dates: start: 20081128

REACTIONS (1)
  - SLEEP APNOEA SYNDROME [None]
